FAERS Safety Report 24164830 (Version 1)
Quarter: 2024Q3

REPORT INFORMATION
  Report Type: Spontaneous
  Country: CN (occurrence: CN)
  Receive Date: 20240801
  Receipt Date: 20240801
  Transmission Date: 20241017
  Serious: Yes (Life-Threatening, Hospitalization)
  Sender: BEIGENE
  Company Number: CN-BEIGENE-BGN-2024-011783

PATIENT

DRUGS (4)
  1. TISLELIZUMAB [Suspect]
     Active Substance: TISLELIZUMAB
     Indication: Oesophageal carcinoma
     Dosage: 2 BOTTLES
     Route: 041
     Dates: start: 20240713
  2. CISPLATIN [Suspect]
     Active Substance: CISPLATIN
     Indication: Oesophageal carcinoma
     Dosage: 80 MILLIGRAM/SQ. METER (D1 30 MG, D2-D3 40 MG)
     Route: 041
     Dates: start: 20240714
  3. DOCETAXEL [Suspect]
     Active Substance: DOCETAXEL\DOCETAXEL ANHYDROUS
     Indication: Oesophageal carcinoma
     Dosage: 70 MILLIGRAM/SQ. METER (110 MG D3)
     Route: 041
     Dates: start: 20240716
  4. FLUOROURACIL [Suspect]
     Active Substance: FLUOROURACIL
     Indication: Oesophageal carcinoma
     Dosage: 800 MILLIGRAM/SQ. METER (0.50G IV 3.25G CONTINUOUS MICROPUMPING FOR 72H)
     Dates: start: 20240714

REACTIONS (4)
  - Drug eruption [Recovering/Resolving]
  - Anaphylactic shock [Recovering/Resolving]
  - Pyrexia [Unknown]
  - Blood pressure decreased [Unknown]

NARRATIVE: CASE EVENT DATE: 20240714
